FAERS Safety Report 7808136-X (Version None)
Quarter: 2011Q4

REPORT INFORMATION
  Report Type: 
  Country: None (occurrence: None)
  Receive Date: 20111011
  Receipt Date: 20110926
  Transmission Date: 20120403
  Serious: Yes (Other)
  Sender: FDA-Public Use
  Company Number: US-ROCHE-1001654

PATIENT
  Sex: Female
  Weight: 94.886 kg

DRUGS (7)
  1. FOLIC ACID [Concomitant]
     Indication: BLOOD PRESSURE
  2. PLAQUENIL [Concomitant]
     Indication: RHEUMATOID ARTHRITIS
  3. METHOTREXATE [Concomitant]
     Dosage: 3 CC
     Route: 058
  4. PREDNISONE [Concomitant]
     Indication: RHEUMATOID ARTHRITIS
  5. MAXZIDE [Concomitant]
     Indication: BLOOD PRESSURE
  6. ACTEMRA [Suspect]
     Indication: RHEUMATOID ARTHRITIS
     Route: 042
     Dates: start: 20110823, end: 20110823
  7. MOTRIN [Concomitant]

REACTIONS (3)
  - DIARRHOEA [None]
  - RECTAL HAEMORRHAGE [None]
  - COLITIS ULCERATIVE [None]
